FAERS Safety Report 10108578 (Version 2)
Quarter: 2014Q2

REPORT INFORMATION
  Report Type: Spontaneous
  Country: JP (occurrence: JP)
  Receive Date: 20140425
  Receipt Date: 20140528
  Transmission Date: 20141212
  Serious: Yes (Hospitalization)
  Sender: FDA-Public Use
  Company Number: JP-ROCHE-1388726

PATIENT
  Age: 51 Year
  Sex: Female

DRUGS (3)
  1. XOLAIR [Suspect]
     Indication: ASTHMA
     Route: 058
     Dates: start: 20120801
  2. XOLAIR [Suspect]
     Route: 058
     Dates: start: 20140320, end: 20140320
  3. XOLAIR [Suspect]
     Route: 065
     Dates: start: 20140412

REACTIONS (7)
  - Liver disorder [Not Recovered/Not Resolved]
  - Thyroiditis subacute [Not Recovered/Not Resolved]
  - Aspartate aminotransferase increased [Unknown]
  - Alanine aminotransferase increased [Unknown]
  - Dizziness [Unknown]
  - Pyrexia [Unknown]
  - Fatigue [Unknown]
